FAERS Safety Report 6145943-6 (Version None)
Quarter: 2009Q2

REPORT INFORMATION
  Report Type: 
  Country: None (occurrence: None)
  Receive Date: 20090407
  Receipt Date: 20090326
  Transmission Date: 20091009
  Serious: Yes (Hospitalization)
  Sender: FDA-Public Use
  Company Number: GB-AVENTIS-200911644EU

PATIENT
  Age: 82 Year
  Sex: Male

DRUGS (12)
  1. FRUSEMIDE [Suspect]
     Indication: DRUG USE FOR UNKNOWN INDICATION
     Dosage: DOSE: UNK
  2. PAROXETINE HYDROCHLORIDE [Suspect]
     Indication: DEPRESSION
     Dosage: DOSE: UNK
     Route: 048
     Dates: start: 20090127, end: 20090309
  3. CARVEDILOL [Suspect]
     Dosage: DOSE: UNK
     Route: 048
  4. CLARITHROMYCIN [Suspect]
     Dosage: DOSE: UNK
     Route: 048
  5. DIAZEPAM [Suspect]
     Dosage: DOSE: UNK
  6. DIGOXIN [Suspect]
     Dosage: DOSE: UNK
     Route: 048
  7. SALMETEROL XINAFOATE [Suspect]
     Dosage: DOSE: UNK
     Route: 055
  8. SULPIRIDE [Suspect]
     Dosage: DOSE: UNK
  9. THEOPHYLLINE [Suspect]
     Dosage: DOSE: UNK
     Route: 048
  10. TIOTROIUM BROMIDE [Suspect]
     Dosage: DOSE: UNK
     Route: 055
  11. VERPAMIL [Suspect]
     Dosage: DOSE: UNK
  12. DANTROLENE SODIUM [Concomitant]

REACTIONS (5)
  - CONVULSION [None]
  - HYPERTHERMIA [None]
  - HYPERTHERMIA MALIGNANT [None]
  - MUSCULOSKELETAL STIFFNESS [None]
  - NEUROLEPTIC MALIGNANT SYNDROME [None]
